FAERS Safety Report 25677594 (Version 1)
Quarter: 2025Q3

REPORT INFORMATION
  Report Type: Spontaneous
  Country: US (occurrence: US)
  Receive Date: 20250813
  Receipt Date: 20250813
  Transmission Date: 20251021
  Serious: Yes (Hospitalization)
  Sender: BridgeBio Pharma
  Company Number: US-BRIDGEBIO-25US001240

PATIENT

DRUGS (1)
  1. ATTRUBY [Suspect]
     Active Substance: ACORAMIDIS HYDROCHLORIDE
     Indication: Product used for unknown indication
     Route: 065

REACTIONS (4)
  - Blood potassium abnormal [Unknown]
  - Abdominal discomfort [Unknown]
  - Blood sodium abnormal [Unknown]
  - Diarrhoea [Recovered/Resolved]
